FAERS Safety Report 11214252 (Version 3)
Quarter: 2015Q3

REPORT INFORMATION
  Report Type: Spontaneous
  Country: JP (occurrence: JP)
  Receive Date: 20150624
  Receipt Date: 20150721
  Transmission Date: 20151125
  Serious: Yes (Death, Life-Threatening, Hospitalization)
  Sender: FDA-Public Use
  Company Number: JP-ROCHE-1597900

PATIENT
  Age: 51 Year
  Sex: Male
  Weight: 60 kg

DRUGS (10)
  1. CISPLATIN. [Suspect]
     Active Substance: CISPLATIN
     Indication: METASTATIC GASTRIC CANCER
     Route: 041
     Dates: start: 20130731, end: 20130731
  2. CISPLATIN. [Suspect]
     Active Substance: CISPLATIN
     Route: 041
     Dates: start: 20130821, end: 20130821
  3. CISPLATIN. [Suspect]
     Active Substance: CISPLATIN
     Route: 041
     Dates: start: 20131002, end: 20131002
  4. CISPLATIN. [Suspect]
     Active Substance: CISPLATIN
     Route: 041
     Dates: start: 20140129
  5. CISPLATIN. [Suspect]
     Active Substance: CISPLATIN
     Route: 041
     Dates: start: 20131023, end: 20131023
  6. XELODA [Suspect]
     Active Substance: CAPECITABINE
     Dosage: IT IS ADMINISTER ONE WEEKLY HOLIDAY MEDICINE FOR TWO WEEKS.?TWO COURSE ENFORCEMENT
     Route: 048
     Dates: start: 20140108, end: 20140210
  7. XELODA [Suspect]
     Active Substance: CAPECITABINE
     Indication: METASTATIC GASTRIC CANCER
     Dosage: IT IS ADMINISTER ONE WEEKLY HOLIDAY MEDICINE FOR TWO WEEKS.?SIX COURSE ENFORCEMENT
     Route: 048
     Dates: start: 20130731, end: 20131125
  8. CISPLATIN. [Suspect]
     Active Substance: CISPLATIN
     Route: 041
     Dates: start: 20130911, end: 20130911
  9. CISPLATIN. [Suspect]
     Active Substance: CISPLATIN
     Route: 041
     Dates: start: 20140108, end: 20140108
  10. CISPLATIN. [Suspect]
     Active Substance: CISPLATIN
     Route: 041
     Dates: start: 20131113, end: 20131113

REACTIONS (7)
  - Diarrhoea [Recovered/Resolved]
  - Cytomegalovirus enterocolitis [Recovered/Resolved]
  - Renal impairment [Not Recovered/Not Resolved]
  - Disease progression [Fatal]
  - Pancytopenia [Recovered/Resolved]
  - Disseminated intravascular coagulation [Recovering/Resolving]
  - Dehydration [Recovered/Resolved]

NARRATIVE: CASE EVENT DATE: 201402
